FAERS Safety Report 7608454-4 (Version None)
Quarter: 2011Q3

REPORT INFORMATION
  Report Type: 
  Country: None (occurrence: None)
  Receive Date: 20110714
  Receipt Date: 20110705
  Transmission Date: 20111222
  Serious: Yes (Hospitalization)
  Sender: FDA-Public Use
  Company Number: JP-ASTRAZENECA-2011SE41127

PATIENT
  Age: 60 Year
  Sex: Male
  Weight: 55 kg

DRUGS (6)
  1. PAXIL [Concomitant]
     Indication: DEPRESSION
     Route: 048
     Dates: end: 20110606
  2. DEPAS [Concomitant]
     Indication: DEPRESSION
     Route: 048
     Dates: end: 20110606
  3. NIFEDIPINE [Suspect]
     Indication: HYPERTENSION
     Route: 048
     Dates: end: 20110603
  4. EURODIN [Concomitant]
     Indication: DEPRESSION
     Route: 048
     Dates: end: 20110525
  5. INNOLET 30R [Concomitant]
     Indication: DIABETES MELLITUS
     Route: 058
     Dates: end: 20110526
  6. CANDESARTAN CILEXETIL [Suspect]
     Indication: HYPERTENSION
     Route: 048
     Dates: end: 20110603

REACTIONS (2)
  - SINUSITIS NONINFECTIVE [None]
  - EOSINOPHILIA [None]
